FAERS Safety Report 5308089-2 (Version None)
Quarter: 2007Q2

REPORT INFORMATION
  Report Type: 
  Country: None (occurrence: None)
  Receive Date: 20070426
  Receipt Date: 20070416
  Transmission Date: 20071010
  Serious: Yes (Hospitalization)
  Sender: FDA-Public Use
  Company Number: PHNU2007DE01536

PATIENT
  Age: 11 Year
  Sex: Female

DRUGS (1)
  1. SANDIMMUNE [Suspect]
     Indication: AUTOIMMUNE DISORDER
     Dosage: UNK, UNK

REACTIONS (2)
  - DRUG LEVEL DECREASED [None]
  - MALABSORPTION [None]
